FAERS Safety Report 8954651 (Version 1)
Quarter: 2012Q4

REPORT INFORMATION
  Report Type: 
  Country: IT (occurrence: IT)
  Receive Date: 20121210
  Receipt Date: 20121210
  Transmission Date: 20130627
  Serious: Yes (Disabling)
  Sender: FDA-Public Use
  Company Number: PHHY2012IT112483

PATIENT
  Age: 63 Year
  Sex: Female

DRUGS (11)
  1. ZOMETA [Suspect]
     Indication: METASTASES TO BONE
     Dosage: 1 DF, UNK
     Route: 042
     Dates: start: 20100617, end: 20120315
  2. ARIMIDEX [Concomitant]
     Dosage: UNK UKN, UNK
     Dates: start: 20110131
  3. ENOXAPARIN [Concomitant]
     Dosage: UNK
  4. LOPRESOR [Concomitant]
     Dosage: UNK UKN, UNK
  5. TOTALIP [Concomitant]
     Dosage: UNK UKN, UNK
  6. ADRIAMYCIN [Concomitant]
     Dosage: UNK UKN, UNK
     Dates: start: 201006, end: 201009
  7. PACLITAXEL [Concomitant]
     Dosage: UNK UKN, UNK
     Dates: start: 201006, end: 201009
  8. CARBOPLATIN [Concomitant]
     Dosage: UNK UKN, UNK
     Dates: start: 20110122, end: 20110131
  9. CARBOPLATIN [Concomitant]
     Dosage: UNK
     Dates: start: 20110530
  10. VINORELBINE [Concomitant]
     Dosage: UNK UKN, UNK
     Dates: start: 20110530
  11. VINORELBINE [Concomitant]
     Dosage: UNK UKN, UNK
     Dates: start: 20110122, end: 20110131

REACTIONS (3)
  - Osteonecrosis of jaw [Not Recovered/Not Resolved]
  - Fistula [Not Recovered/Not Resolved]
  - Primary sequestrum [Not Recovered/Not Resolved]
